FAERS Safety Report 14296035 (Version 1)
Quarter: 2017Q4

REPORT INFORMATION
  Report Type: Report from Study
  Country: US (occurrence: US)
  Receive Date: 20171218
  Receipt Date: 20171218
  Transmission Date: 20180321
  Serious: Yes (Death, Other)
  Sender: FDA-Public Use
  Company Number: US-TORRENT-00005361

PATIENT
  Age: 14 Year
  Sex: Male

DRUGS (3)
  1. METOPROLOL SUCCINATE. [Suspect]
     Active Substance: METOPROLOL SUCCINATE
     Indication: PRODUCT USED FOR UNKNOWN INDICATION
     Route: 048
  2. FLECAINIDE ACETATE. [Suspect]
     Active Substance: FLECAINIDE ACETATE
     Indication: PRODUCT USED FOR UNKNOWN INDICATION
     Route: 065
  3. CITALOPRAM [Suspect]
     Active Substance: CITALOPRAM HYDROBROMIDE
     Indication: PRODUCT USED FOR UNKNOWN INDICATION
     Route: 048

REACTIONS (9)
  - Unresponsive to stimuli [Unknown]
  - Intentional overdose [None]
  - Toxicity to various agents [Fatal]
  - Completed suicide [Fatal]
  - Electrocardiogram QT prolonged [Unknown]
  - Seizure [Unknown]
  - Hypotension [Unknown]
  - Bradycardia [Unknown]
  - Overdose [Fatal]
